FAERS Safety Report 7161502-0 (Version None)
Quarter: 2010Q4

REPORT INFORMATION
  Report Type: 
  Country: None (occurrence: None)
  Receive Date: 20101215
  Receipt Date: 20101201
  Transmission Date: 20110411
  Serious: No
  Sender: FDA-Public Use
  Company Number: US-PFIZER INC-2010163536

PATIENT

DRUGS (2)
  1. ARGATROBAN [Suspect]
     Dosage: .5 KG, UNK
  2. COUMADIN [Interacting]
     Dosage: 10 MG, UNK

REACTIONS (2)
  - DRUG INTERACTION [None]
  - INTERNATIONAL NORMALISED RATIO INCREASED [None]
